FAERS Safety Report 7918345-7 (Version None)
Quarter: 2011Q4

REPORT INFORMATION
  Report Type: 
  Country: None (occurrence: None)
  Receive Date: 20111116
  Receipt Date: 20111111
  Transmission Date: 20120403
  Serious: Yes (Hospitalization, Other)
  Sender: FDA-Public Use
  Company Number: IT-PFIZER INC-2011279019

PATIENT
  Age: 76 Year
  Sex: Male

DRUGS (1)
  1. SUTENT [Suspect]
     Dosage: 50 MG, UNK

REACTIONS (4)
  - THROMBOCYTOPENIA [None]
  - BLOOD THYROID STIMULATING HORMONE INCREASED [None]
  - CARDIAC FAILURE [None]
  - HYPERTENSION [None]
